FAERS Safety Report 19407130 (Version 1)
Quarter: 2021Q2

REPORT INFORMATION
  Report Type: Spontaneous
  Country: CA (occurrence: CA)
  Receive Date: 20210612
  Receipt Date: 20210612
  Transmission Date: 20210717
  Serious: Yes (Hospitalization)
  Sender: FDA-Public Use
  Company Number: CA-TEVA-2021-CA-1919952

PATIENT
  Age: 65 Year
  Sex: Male

DRUGS (16)
  1. PERINDOPRIL [Concomitant]
     Active Substance: PERINDOPRIL
  2. PREGABALIN. [Concomitant]
     Active Substance: PREGABALIN
  3. VENLAFAXINE HYDROCHLORIDE. [Concomitant]
     Active Substance: VENLAFAXINE HYDROCHLORIDE
  4. ATORVASTATIN [Suspect]
     Active Substance: ATORVASTATIN
     Indication: DYSLIPIDAEMIA
     Dosage: 10 MILLIGRAM DAILY;
     Route: 048
  5. ASA [Concomitant]
     Active Substance: ASPIRIN
  6. QUETIAPINE. [Concomitant]
     Active Substance: QUETIAPINE
  7. VITAMIN D [Concomitant]
     Active Substance: VITAMIN D NOS
  8. CARDIZEM CD [Concomitant]
     Active Substance: DILTIAZEM HYDROCHLORIDE
  9. PANTOLOC [Concomitant]
     Active Substance: PANTOPRAZOLE SODIUM
  10. PREZISTA [Concomitant]
     Active Substance: DARUNAVIR ETHANOLATE
  11. RITONAVIR. [Concomitant]
     Active Substance: RITONAVIR
  12. ODEFSEY [Concomitant]
     Active Substance: EMTRICITABINE\RILPIVIRINE HYDROCHLORIDE\TENOFOVIR ALAFENAMIDE FUMARATE
  13. PEPCID [Concomitant]
     Active Substance: FAMOTIDINE
  14. RISPERIDONE. [Concomitant]
     Active Substance: RISPERIDONE
  15. TIVICAY [Concomitant]
     Active Substance: DOLUTEGRAVIR SODIUM
  16. THIAMINE. [Concomitant]
     Active Substance: THIAMINE

REACTIONS (6)
  - Drug interaction [Recovered/Resolved]
  - Rhabdomyolysis [Recovered/Resolved]
  - Abdominal pain [Recovered/Resolved]
  - Blood creatine phosphokinase increased [Recovered/Resolved]
  - Dyspnoea [Recovered/Resolved]
  - Confusional state [Recovered/Resolved]
